FAERS Safety Report 6276314-X (Version None)
Quarter: 2009Q3

REPORT INFORMATION
  Report Type: 
  Country: None (occurrence: None)
  Receive Date: 20090722
  Receipt Date: 20090713
  Transmission Date: 20100115
  Serious: Yes (Other)
  Sender: FDA-Public Use
  Company Number: AR-ROCHE-639364

PATIENT
  Age: 58 Year
  Sex: Male

DRUGS (2)
  1. XELODA [Suspect]
     Indication: COLON CANCER
     Route: 048
     Dates: start: 20090401, end: 20090501
  2. OXALIPLATINO [Concomitant]
     Indication: COLON CANCER
     Dates: start: 20090401, end: 20090501

REACTIONS (2)
  - EYE MOVEMENT DISORDER [None]
  - FACIAL PALSY [None]
